FAERS Safety Report 5392220-7 (Version None)
Quarter: 2007Q3

REPORT INFORMATION
  Report Type: 
  Country: None (occurrence: None)
  Receive Date: 20070720
  Receipt Date: 20070713
  Transmission Date: 20080115
  Serious: Yes (Disabling)
  Sender: FDA-Public Use
  Company Number: BR-AVENTIS-200716480GDDC

PATIENT
  Age: 56 Year
  Sex: Female
  Weight: 60 kg

DRUGS (5)
  1. LANTUS [Suspect]
     Route: 058
     Dates: start: 20070701
  2. METFORMIN HCL [Concomitant]
     Route: 048
     Dates: start: 19870101
  3. EUTHYROX [Concomitant]
     Indication: HYPOTHYROIDISM
     Route: 048
     Dates: start: 20040101
  4. SIMVASTATIN [Concomitant]
     Route: 048
     Dates: start: 20020101
  5. ATENOLOL [Concomitant]
     Route: 048
     Dates: start: 20040101

REACTIONS (7)
  - DIZZINESS [None]
  - HEADACHE [None]
  - HYPERGLYCAEMIA [None]
  - HYPERTENSION [None]
  - LISTLESS [None]
  - PAIN IN EXTREMITY [None]
  - RETCHING [None]
